FAERS Safety Report 5037750-2 (Version None)
Quarter: 2006Q2

REPORT INFORMATION
  Report Type: 
  Country: None (occurrence: None)
  Receive Date: 20060601
  Receipt Date: 20060208
  Transmission Date: 20061013
  Serious: No
  Sender: FDA-Public Use
  Company Number: 2006PV008352

PATIENT
  Age: 66 Year
  Sex: Female
  Weight: 72.5755 kg

DRUGS (3)
  1. BYETTA [Suspect]
     Indication: DIABETES MELLITUS NON-INSULIN-DEPENDENT
     Dosage: 5 MCG; BID; SC
     Route: 058
     Dates: start: 20060206
  2. METFORMIN [Concomitant]
  3. GLYBURIDE [Concomitant]

REACTIONS (3)
  - BLOOD GLUCOSE DECREASED [None]
  - FEELING ABNORMAL [None]
  - HYPERHIDROSIS [None]
